FAERS Safety Report 6616948-3 (Version None)
Quarter: 2010Q1

REPORT INFORMATION
  Report Type: 
  Country: None (occurrence: None)
  Receive Date: 20100301
  Receipt Date: 20100216
  Transmission Date: 20100710
  Serious: Yes (Life-Threatening, Hospitalization, Disabling)
  Sender: FDA-Public Use
  Company Number: 007657

PATIENT
  Age: 80 Year
  Sex: Male

DRUGS (34)
  1. OMEPRAZOLE [Suspect]
     Dosage: SEE IMAGE
     Route: 042
     Dates: start: 20050517, end: 20050527
  2. OMEPRAZOLE [Suspect]
     Dosage: SEE IMAGE
     Route: 042
     Dates: start: 20050113
  3. OMEPRAZOLE [Suspect]
     Dosage: SEE IMAGE
     Route: 042
     Dates: start: 20050209
  4. OMEPRAZOLE [Suspect]
     Dosage: SEE IMAGE
     Route: 042
     Dates: start: 20050505
  5. OMEPRAZOLE [Suspect]
     Dosage: SEE IMAGE
     Route: 042
     Dates: start: 20050601
  6. OMEPRAZOLE [Suspect]
     Dosage: SEE IMAGE
     Route: 042
     Dates: start: 20050618
  7. OMEPRAZOLE [Suspect]
     Dosage: SEE IMAGE
     Route: 042
     Dates: start: 20050630
  8. OMEPRAZOLE [Suspect]
     Dosage: SEE IMAGE
     Route: 042
     Dates: start: 20050714
  9. OMEPRAZOLE [Suspect]
     Dosage: SEE IMAGE
     Route: 042
     Dates: start: 20050730
  10. OMEPRAZOLE [Suspect]
     Dosage: SEE IMAGE
     Route: 042
     Dates: start: 20050811
  11. OMEPRAZOLE [Suspect]
     Dosage: SEE IMAGE
     Route: 042
     Dates: start: 20050819
  12. OMEPRAZOLE [Suspect]
     Dosage: SEE IMAGE
     Route: 042
     Dates: start: 20050827
  13. OMEPRAZOLE [Suspect]
     Dosage: SEE IMAGE
     Route: 042
     Dates: start: 20050910
  14. OMEPRAZOLE [Suspect]
     Dosage: SEE IMAGE
     Route: 042
     Dates: start: 20050920
  15. OMEPRAZOLE [Suspect]
     Dosage: SEE IMAGE
     Route: 042
     Dates: start: 20051009
  16. OMEPRAZOLE [Suspect]
     Dosage: SEE IMAGE
     Route: 042
     Dates: start: 20051018
  17. OMEPRAZOLE [Suspect]
     Dosage: SEE IMAGE
     Route: 042
     Dates: start: 20051105
  18. OMEPRAZOLE [Suspect]
     Dosage: SEE IMAGE
     Route: 042
     Dates: start: 20051115
  19. OMEPRAZOLE [Suspect]
     Dosage: SEE IMAGE
     Route: 042
     Dates: start: 20051129
  20. OMEPRAZOLE [Suspect]
     Dosage: SEE IMAGE
     Route: 042
     Dates: start: 20051213
  21. OMEPRAZOLE [Suspect]
     Dosage: SEE IMAGE
     Route: 042
     Dates: start: 20051228
  22. OMEPRAZOLE [Suspect]
     Dosage: SEE IMAGE
     Route: 042
     Dates: start: 20060223
  23. OMEPRAZOLE [Suspect]
     Dosage: SEE IMAGE
     Route: 042
     Dates: start: 20060313
  24. OMEPRAZOLE [Suspect]
     Dosage: SEE IMAGE
     Route: 042
     Dates: start: 20060328
  25. OMEPRAZOLE [Suspect]
     Dosage: SEE IMAGE
     Route: 042
     Dates: start: 20060411
  26. OMEPRAZOLE [Suspect]
     Dosage: SEE IMAGE
     Route: 042
     Dates: start: 20060501
  27. OMEPRAZOLE [Suspect]
     Dosage: SEE IMAGE
     Route: 042
     Dates: start: 20060509
  28. OMEPRAZOLE [Suspect]
     Dosage: SEE IMAGE
     Route: 042
     Dates: start: 20060527
  29. OMEPRAZOLE [Suspect]
     Dosage: SEE IMAGE
     Route: 042
     Dates: start: 20080617
  30. PANTOPRAZOLE SODIUM [Suspect]
     Indication: GASTROOESOPHAGEAL REFLUX DISEASE
  31. LOSEC I.V. [Suspect]
     Indication: GASTROOESOPHAGEAL REFLUX DISEASE
     Dosage: (LOSEC 40 MG ORAL) ; (ORAL)
     Route: 048
     Dates: start: 20020101, end: 20060501
  32. LOSEC I.V. [Suspect]
     Indication: GASTROOESOPHAGEAL REFLUX DISEASE
     Dosage: (LOSEC 40 MG ORAL) ; (ORAL)
     Route: 048
     Dates: start: 20060601
  33. LANSOPRAZOLE [Suspect]
     Dates: start: 20060725, end: 20060808
  34. RABEPRAZOLE SODIUM [Suspect]

REACTIONS (3)
  - HYPOMAGNESAEMIA [None]
  - HYPOPARATHYROIDISM [None]
  - TETANY [None]
